FAERS Safety Report 13387260 (Version 2)
Quarter: 2017Q2

REPORT INFORMATION
  Report Type: Spontaneous
  Country: GB (occurrence: GB)
  Receive Date: 20170330
  Receipt Date: 20170405
  Transmission Date: 20170830
  Serious: Yes (Life-Threatening, Other)
  Sender: FDA-Public Use
  Company Number: GB-ABBVIE-17P-167-1921585-00

PATIENT
  Age: 24 Month
  Sex: Male

DRUGS (3)
  1. SODIUM VALPROATE [Suspect]
     Active Substance: VALPROATE SODIUM
     Indication: INFANTILE SPASMS
  2. SODIUM VALPROATE [Suspect]
     Active Substance: VALPROATE SODIUM
     Indication: EPILEPTIC ENCEPHALOPATHY
  3. SODIUM VALPROATE [Suspect]
     Active Substance: VALPROATE SODIUM
     Indication: SEIZURE
     Route: 065

REACTIONS (11)
  - Weight decreased [Unknown]
  - Pallor [Unknown]
  - Hypernatraemia [Unknown]
  - Hypokalaemia [Unknown]
  - Vomiting [Unknown]
  - Hypoalbuminaemia [Unknown]
  - Fanconi syndrome [Unknown]
  - Oedema [Unknown]
  - Acidosis hyperchloraemic [Unknown]
  - Somnolence [Unknown]
  - Hypophosphataemia [Unknown]
